FAERS Safety Report 21892467 (Version 1)
Quarter: 2023Q1

REPORT INFORMATION
  Report Type: Spontaneous
  Country: US (occurrence: None)
  Receive Date: 20230120
  Receipt Date: 20230120
  Transmission Date: 20230418
  Serious: Yes (Hospitalization, Other)
  Sender: FDA-Public Use
  Company Number: 2023A010797

PATIENT
  Age: 78 Year
  Sex: Female

DRUGS (1)
  1. SYMBICORT [Suspect]
     Active Substance: BUDESONIDE\FORMOTEROL FUMARATE DIHYDRATE
     Indication: Chronic obstructive pulmonary disease
     Dosage: 160/4.5MCG AS 2 PUFFS TWICE A DAY
     Route: 055
     Dates: start: 2022

REACTIONS (9)
  - Chest pain [Recovered/Resolved]
  - Back pain [Recovered/Resolved]
  - Cardiac failure congestive [Recovered/Resolved]
  - Gastroenteritis viral [Unknown]
  - Blood glucose abnormal [Recovered/Resolved]
  - Atrial fibrillation [Recovered/Resolved]
  - Wrong technique in device usage process [Recovered/Resolved]
  - Product use issue [Recovered/Resolved]
  - Device malfunction [Unknown]

NARRATIVE: CASE EVENT DATE: 20220101
